FAERS Safety Report 8184118-6 (Version None)
Quarter: 2012Q1

REPORT INFORMATION
  Report Type: 
  Country: None (occurrence: None)
  Receive Date: 20120305
  Receipt Date: 20120202
  Transmission Date: 20120608
  Serious: Yes (Life-Threatening)
  Sender: FDA-Public Use
  Company Number: IT-ROCHE-1038447

PATIENT
  Sex: Male

DRUGS (7)
  1. TORADOL [Suspect]
     Indication: ANALGESIC THERAPY
     Dosage: SOLUTION
     Route: 042
     Dates: start: 20120126, end: 20120126
  2. ACETAMINOPHEN [Concomitant]
  3. ULTIVA [Concomitant]
  4. PROPOFOL [Concomitant]
  5. ONDANSETRON [Suspect]
     Indication: VOMITING
     Dosage: SOLUTION
     Route: 042
     Dates: start: 20120126, end: 20120126
  6. NIMBEX [Concomitant]
  7. SUPRANE [Concomitant]

REACTIONS (2)
  - RASH GENERALISED [None]
  - ANAPHYLACTIC SHOCK [None]
